FAERS Safety Report 15724468 (Version 1)
Quarter: 2018Q4

REPORT INFORMATION
  Report Type: Report from Study
  Country: BR (occurrence: BR)
  Receive Date: 20181214
  Receipt Date: 20181214
  Transmission Date: 20190205
  Serious: Yes (Other)
  Sender: FDA-Public Use
  Company Number: PHHY2018BR185293

PATIENT
  Sex: Male
  Weight: 100 kg

DRUGS (1)
  1. ENTRESTO [Suspect]
     Active Substance: SACUBITRIL\VALSARTAN
     Indication: CARDIAC FAILURE CHRONIC
     Dosage: 1 DF(97 MG SACUBITRIL, 103 MG VALSARTAN), BID
     Route: 048
     Dates: start: 201804

REACTIONS (5)
  - Asthenia [Recovering/Resolving]
  - Fatigue [Recovering/Resolving]
  - Chest pain [Recovering/Resolving]
  - Heart rate abnormal [Recovering/Resolving]
  - Condition aggravated [Recovering/Resolving]
